FAERS Safety Report 10376185 (Version 1)
Quarter: 2014Q3

REPORT INFORMATION
  Report Type: Spontaneous
  Country: US (occurrence: US)
  Receive Date: 20140811
  Receipt Date: 20140811
  Transmission Date: 20150326
  Serious: No
  Sender: FDA-Public Use
  Company Number: US-ASTRAZENECA-2014SE04973

PATIENT
  Age: 56 Year
  Sex: Female

DRUGS (2)
  1. CALCIUM WITH VIT D AND ZINC [Concomitant]
     Indication: OSTEOPENIA
     Dosage: 1 PILL BID
     Route: 048
     Dates: start: 2013
  2. ARIMIDEX [Suspect]
     Active Substance: ANASTROZOLE
     Indication: BREAST CANCER
     Route: 048
     Dates: start: 2013

REACTIONS (6)
  - Pain in extremity [Unknown]
  - Mobility decreased [Unknown]
  - Hypoaesthesia [Unknown]
  - Feeling abnormal [Unknown]
  - Pain [Unknown]
  - Paraesthesia [Unknown]

NARRATIVE: CASE EVENT DATE: 2013
